FAERS Safety Report 8722640 (Version 4)
Quarter: 2014Q3

REPORT INFORMATION
  Report Type: Spontaneous
  Country: US (occurrence: US)
  Receive Date: 20120814
  Receipt Date: 20140817
  Transmission Date: 20150326
  Serious: Yes (Other)
  Sender: FDA-Public Use
  Company Number: US-ROCHE-1065825

PATIENT
  Age: 23 Year
  Sex: Female
  Weight: 50.39 kg

DRUGS (4)
  1. ACCUTANE [Suspect]
     Active Substance: ISOTRETINOIN
     Route: 065
     Dates: start: 19990105, end: 19990205
  2. ACCUTANE [Suspect]
     Active Substance: ISOTRETINOIN
     Route: 065
     Dates: end: 200105
  3. ACCUTANE [Suspect]
     Active Substance: ISOTRETINOIN
     Indication: ACNE
     Route: 065
     Dates: start: 19951121, end: 19960510
  4. ACCUTANE [Suspect]
     Active Substance: ISOTRETINOIN
     Route: 065
     Dates: start: 20001115

REACTIONS (10)
  - Intestinal obstruction [Unknown]
  - Inflammatory bowel disease [Unknown]
  - Astigmatism [Unknown]
  - Dry skin [Unknown]
  - Depression [Unknown]
  - Dry eye [Unknown]
  - Myopia [Unknown]
  - Colitis ulcerative [Unknown]
  - Irritable bowel syndrome [Not Recovered/Not Resolved]
  - Blood cholesterol increased [Recovered/Resolved]

NARRATIVE: CASE EVENT DATE: 19951229
